FAERS Safety Report 15706473 (Version 2)
Quarter: 2019Q1

REPORT INFORMATION
  Report Type: Report from Study
  Country: JP (occurrence: JP)
  Receive Date: 20181210
  Receipt Date: 20190204
  Transmission Date: 20190417
  Serious: Yes (Other)
  Sender: FDA-Public Use
  Company Number: JP-TAKEDA-2018TUS035114

PATIENT
  Age: 81 Year
  Sex: Male
  Weight: 57 kg

DRUGS (1)
  1. PONATINIB [Suspect]
     Active Substance: PONATINIB
     Indication: CHRONIC MYELOID LEUKAEMIA TRANSFORMATION
     Dosage: 15 MILLIGRAM, QD
     Route: 048
     Dates: start: 20171219

REACTIONS (1)
  - Proteinuria [Not Recovered/Not Resolved]

NARRATIVE: CASE EVENT DATE: 20171226
